FAERS Safety Report 7089993-4 (Version None)
Quarter: 2010Q4

REPORT INFORMATION
  Report Type: 
  Country: None (occurrence: None)
  Receive Date: 20101109
  Receipt Date: 20101029
  Transmission Date: 20110411
  Serious: Yes (Hospitalization)
  Sender: FDA-Public Use
  Company Number: US-BIOGENIDEC-2010BI038545

PATIENT
  Age: 54 Year
  Sex: Male
  Weight: 77 kg

DRUGS (3)
  1. TYSABRI [Suspect]
     Indication: MULTIPLE SCLEROSIS
     Route: 042
     Dates: start: 20100525
  2. LISINOPRIL [Concomitant]
     Indication: PROPHYLAXIS
  3. VESICARE [Concomitant]
     Indication: PROPHYLAXIS

REACTIONS (2)
  - GAIT DISTURBANCE [None]
  - MOBILITY DECREASED [None]
